FAERS Safety Report 12378697 (Version 1)
Quarter: 2016Q2

REPORT INFORMATION
  Report Type: Spontaneous
  Country: IT (occurrence: IT)
  Receive Date: 20160517
  Receipt Date: 20160517
  Transmission Date: 20160815
  Serious: Yes (Other)
  Sender: FDA-Public Use
  Company Number: IT-TEVA-654498ACC

PATIENT
  Sex: Female

DRUGS (1)
  1. CLOPIDOGREL [Suspect]
     Active Substance: CLOPIDOGREL BISULFATE
     Indication: VENTRICULAR FAILURE
     Dosage: 75 MILLIGRAM DAILY; 75 MG DAILY
     Route: 048

REACTIONS (2)
  - Pruritus generalised [Unknown]
  - Heat stroke [Unknown]
